FAERS Safety Report 5005214-8 (Version None)
Quarter: 2006Q2

REPORT INFORMATION
  Report Type: 
  Country: None (occurrence: None)
  Receive Date: 20060515
  Receipt Date: 20060502
  Transmission Date: 20061013
  Serious: Yes (Other)
  Sender: FDA-Public Use
  Company Number: 2005024954

PATIENT
  Age: 68 Year
  Sex: Female
  Weight: 95.2554 kg

DRUGS (6)
  1. CELEBREX [Suspect]
     Indication: ARTHRALGIA
     Dosage: 200 MG (200 MG, 1 IN 1 D), ORAL
     Route: 048
     Dates: start: 20000101
  2. CELEBREX [Suspect]
     Indication: OSTEOARTHRITIS
     Dosage: 200 MG (200 MG, 1 IN 1 D), ORAL
     Route: 048
     Dates: start: 20000101
  3. BEXTRA [Suspect]
     Indication: ILL-DEFINED DISORDER
  4. VIOXX [Suspect]
     Indication: ILL-DEFINED DISORDER
     Dates: start: 20011001, end: 20040930
  5. LIPITOR [Concomitant]
  6. QUININE SULFATE [Concomitant]

REACTIONS (17)
  - ARTHRITIS [None]
  - ARTHROPATHY [None]
  - BACK PAIN [None]
  - CONDITION AGGRAVATED [None]
  - DIABETES MELLITUS [None]
  - DIFFICULTY IN WALKING [None]
  - DRUG EFFECT DECREASED [None]
  - FALL [None]
  - HYPERSENSITIVITY [None]
  - IRRITABLE BOWEL SYNDROME [None]
  - OEDEMA PERIPHERAL [None]
  - PAIN [None]
  - PHARMACEUTICAL PRODUCT COMPLAINT [None]
  - SKIN DISCOLOURATION [None]
  - SURGICAL PROCEDURE REPEATED [None]
  - THERAPY NON-RESPONDER [None]
  - VASCULAR RUPTURE [None]
